FAERS Safety Report 14161290 (Version 1)
Quarter: 2017Q4

REPORT INFORMATION
  Report Type: Spontaneous
  Country: GB (occurrence: GB)
  Receive Date: 20171106
  Receipt Date: 20171106
  Transmission Date: 20180321
  Serious: Yes (Hospitalization)
  Sender: FDA-Public Use
  Company Number: GB-VIIV HEALTHCARE LIMITED-GB2017GSK167940

PATIENT
  Sex: Male

DRUGS (1)
  1. TELZIR [Suspect]
     Active Substance: FOSAMPRENAVIR CALCIUM
     Indication: HIV INFECTION
     Dosage: UNK

REACTIONS (2)
  - Malaise [Unknown]
  - Fall [Unknown]
